FAERS Safety Report 22532058 (Version 1)
Quarter: 2023Q2

REPORT INFORMATION
  Report Type: Report from Study
  Country: US (occurrence: US)
  Receive Date: 20230607
  Receipt Date: 20230607
  Transmission Date: 20230722
  Serious: Yes (Other)
  Sender: FDA-Public Use
  Company Number: US-AMGEN-USACT2023095143

PATIENT
  Age: 77 Year
  Sex: Female
  Weight: 103 kg

DRUGS (7)
  1. CARFILZOMIB [Suspect]
     Active Substance: CARFILZOMIB
     Indication: Plasma cell myeloma
     Dosage: UNK UNK, PER CHEMO REGIM
     Route: 065
     Dates: start: 20160829, end: 20170503
  2. DEXAMETHASONE [Suspect]
     Active Substance: DEXAMETHASONE
     Indication: Plasma cell myeloma
     Dosage: UNK UNK, PER CHEMO REGIM
     Route: 065
     Dates: start: 20160829, end: 20170509
  3. LENALIDOMIDE [Suspect]
     Active Substance: LENALIDOMIDE
     Indication: Plasma cell myeloma
     Dosage: UNK UNK, PER CHEMO REGIM
     Route: 065
     Dates: start: 20160829, end: 20181230
  4. DARATUMUMAB [Concomitant]
     Active Substance: DARATUMUMAB
     Dosage: UNK
     Dates: start: 201902, end: 202304
  5. LENALIDOMIDE [Concomitant]
     Active Substance: LENALIDOMIDE
     Dosage: UNK
     Dates: start: 201902, end: 202303
  6. DEXAMETHASONE [Concomitant]
     Active Substance: DEXAMETHASONE
     Dosage: UNK
     Dates: start: 201902, end: 202304
  7. LEVOTHYROXINE [Concomitant]
     Active Substance: LEVOTHYROXINE
     Dosage: UNK

REACTIONS (1)
  - Thyroid cancer [Recovered/Resolved]

NARRATIVE: CASE EVENT DATE: 20211027
